FAERS Safety Report 5776691-X (Version None)
Quarter: 2008Q2

REPORT INFORMATION
  Report Type: 
  Country: None (occurrence: None)
  Receive Date: 20080618
  Receipt Date: 20080502
  Transmission Date: 20081010
  Serious: No
  Sender: FDA-Public Use
  Company Number: US-ASTRAZENECA-2008UW04203

PATIENT
  Age: 63 Year
  Sex: Female
  Weight: 81.6 kg

DRUGS (17)
  1. SYMBICORT [Suspect]
     Indication: ASTHMA
     Dosage: 160/4.5 UG TWO PUFFS EVERY 12 HOURS
     Route: 055
     Dates: start: 20080228, end: 20080302
  2. LIPITOR [Concomitant]
  3. COZAAR [Concomitant]
  4. ZYRTEC [Concomitant]
  5. CLARINEX [Concomitant]
  6. ZOLOFT [Concomitant]
  7. METHOTREXATE [Concomitant]
  8. AZULFIDINE EN-TABS [Concomitant]
  9. FOLIC ACID [Concomitant]
  10. EMBRIL [Concomitant]
  11. PROTONIX [Concomitant]
  12. GLUCOSAMINE [Concomitant]
  13. OMEPRAZOLE [Concomitant]
  14. SIMVASTATIN [Concomitant]
  15. LISINOPRIL [Concomitant]
  16. SINGULAIR [Concomitant]
  17. ADVAIR DISKUS 100/50 [Concomitant]

REACTIONS (1)
  - STOMATITIS [None]
